FAERS Safety Report 6070748-4 (Version None)
Quarter: 2009Q1

REPORT INFORMATION
  Report Type: 
  Country: None (occurrence: None)
  Receive Date: 20090209
  Receipt Date: 20090129
  Transmission Date: 20090719
  Serious: Yes (Other)
  Sender: FDA-Public Use
  Company Number: US-SANOFI-SYNTHELABO-A03200900212

PATIENT
  Age: 44 Year
  Sex: Male

DRUGS (1)
  1. AMBIEN CR [Suspect]
     Indication: DRUG USE FOR UNKNOWN INDICATION
     Dosage: TOOK 30 TABLETS
     Route: 048
     Dates: start: 20081226

REACTIONS (4)
  - AMNESIA [None]
  - OVERDOSE [None]
  - PHYSICAL ASSAULT [None]
  - SOMNAMBULISM [None]
